FAERS Safety Report 9776731 (Version 4)
Quarter: 2014Q3

REPORT INFORMATION
  Report Type: Spontaneous
  Country: JP (occurrence: JP)
  Receive Date: 20131220
  Receipt Date: 20140924
  Transmission Date: 20150326
  Serious: Yes (Hospitalization, Other)
  Sender: FDA-Public Use
  Company Number: PHHY2013JP145754

PATIENT
  Age: 13 Year
  Sex: Female

DRUGS (3)
  1. URSODEOXYCHOLIC ACID [Suspect]
     Active Substance: URSODIOL
  2. DICLOFENAC [Suspect]
     Active Substance: DICLOFENAC
  3. LOXOPROFEN [Suspect]
     Active Substance: LOXOPROFEN

REACTIONS (5)
  - Jaundice [Recovering/Resolving]
  - Aspartate aminotransferase increased [Recovering/Resolving]
  - Drug ineffective [Unknown]
  - Alanine aminotransferase increased [Recovering/Resolving]
  - Vanishing bile duct syndrome [Recovering/Resolving]
